FAERS Safety Report 7273114-9 (Version None)
Quarter: 2011Q1

REPORT INFORMATION
  Report Type: 
  Country: None (occurrence: None)
  Receive Date: 20110203
  Receipt Date: 20110124
  Transmission Date: 20110831
  Serious: Yes (Hospitalization)
  Sender: FDA-Public Use
  Company Number: CA-JNJFOC-20101202201

PATIENT
  Sex: Male

DRUGS (3)
  1. REMICADE [Suspect]
     Indication: CROHN'S DISEASE
     Route: 042
  2. GRAVOL TAB [Concomitant]
     Route: 048
  3. REMICADE [Suspect]
     Route: 042

REACTIONS (7)
  - GASTROINTESTINAL INFECTION [None]
  - DIARRHOEA [None]
  - ANXIETY [None]
  - INFLUENZA [None]
  - DECREASED APPETITE [None]
  - NAUSEA [None]
  - INFUSION RELATED REACTION [None]
